FAERS Safety Report 14364090 (Version 3)
Quarter: 2018Q1

REPORT INFORMATION
  Report Type: Spontaneous
  Country: US (occurrence: US)
  Receive Date: 20180108
  Receipt Date: 20180328
  Transmission Date: 20180509
  Serious: No
  Sender: FDA-Public Use
  Company Number: US-ASTRAZENECA-2017SF29130

PATIENT
  Sex: Male
  Weight: 99.8 kg

DRUGS (3)
  1. BENECAR HCT [Concomitant]
     Indication: BLOOD PRESSURE ABNORMAL
  2. KOMBIGLYZE XR [Suspect]
     Active Substance: METFORMIN HYDROCHLORIDE\SAXAGLIPTIN HYDROCHLORIDE
     Indication: DIABETES MELLITUS
     Dosage: 2.5/1000 MG, TWO TIMES A DAY
     Route: 048
  3. BYDUREON [Suspect]
     Active Substance: EXENATIDE
     Indication: BLOOD GLUCOSE INCREASED
     Dosage: 2 MG, UNKNOWN
     Route: 058

REACTIONS (4)
  - Off label use [Unknown]
  - Intentional product misuse [Unknown]
  - Blood glucose increased [Unknown]
  - Product quality issue [Unknown]
